FAERS Safety Report 14746706 (Version 2)
Quarter: 2021Q4

REPORT INFORMATION
  Report Type: Spontaneous
  Country: US (occurrence: US)
  Receive Date: 20180411
  Receipt Date: 20211028
  Transmission Date: 20220303
  Serious: Yes (Disabling, Other)
  Sender: FDA-Public Use
  Company Number: US-TEVA-2018-US-879340

PATIENT
  Age: 62 Year
  Sex: Female
  Weight: 75 kg

DRUGS (10)
  1. DOCETAXEL [Suspect]
     Active Substance: DOCETAXEL
     Indication: Breast cancer female
     Dosage: DOSE: 20 MG/ML (SOLN) 6 CYCLES WITH FREQUENCY EVERY 3 WEEKS
     Route: 042
     Dates: start: 20150428, end: 20150813
  2. CARBOPLATIN [Suspect]
     Active Substance: CARBOPLATIN
     Indication: Breast cancer female
     Dosage: DOSE:712,2 MG IN DEXTROSE 5% 250 ML CHEMO INFUSION, 6 CYCLES WITH FREQUENCY EVERY 3 WEEKS
     Route: 042
     Dates: start: 20150428, end: 20150813
  3. HERCEPTIN [Suspect]
     Active Substance: TRASTUZUMAB
     Indication: Breast cancer female
     Dosage: DOSE: 370 MG IN SODIUM CHLORIDE 0.9% 250 ML CHEMO INFUSION, 6 CYCLES WITH FREQUENCY EVERY 3 WEEKS
     Route: 042
     Dates: start: 20150428, end: 20150813
  4. XANAX [Concomitant]
     Active Substance: ALPRAZOLAM
     Route: 065
     Dates: start: 19970101, end: 20141231
  5. COREG [Concomitant]
     Active Substance: CARVEDILOL
     Route: 065
     Dates: start: 20140101, end: 20141231
  6. DESYREL [Concomitant]
     Active Substance: TRAZODONE HYDROCHLORIDE
     Route: 065
     Dates: start: 2000
  7. PROZAC [Concomitant]
     Active Substance: FLUOXETINE HYDROCHLORIDE
     Route: 065
     Dates: start: 20140101
  8. ZOFRAN [Concomitant]
     Active Substance: ONDANSETRON HYDROCHLORIDE
     Indication: Breast cancer female
     Dosage: DOSE: 4 MG/2 ML. 16 MG IN SODIUM CHLORIDE
     Route: 042
     Dates: start: 20150428, end: 20150813
  9. DECADRON [Concomitant]
     Active Substance: DEXAMETHASONE
     Dosage: DOSE: 12 MG IN DEXTROSE 5% IVPB
     Route: 042
     Dates: start: 20150428, end: 20150813
  10. NEULASTA [Concomitant]
     Active Substance: PEGFILGRASTIM
     Indication: Breast cancer female
     Route: 058
     Dates: start: 20150428, end: 20150813

REACTIONS (16)
  - Alopecia areata [Not Recovered/Not Resolved]
  - Madarosis [Not Recovered/Not Resolved]
  - Haematochezia [Unknown]
  - Hair texture abnormal [Not Recovered/Not Resolved]
  - Hair colour changes [Not Recovered/Not Resolved]
  - Fatigue [Unknown]
  - Oedema peripheral [Unknown]
  - Constipation [Recovered/Resolved]
  - Anaemia [Unknown]
  - Decreased appetite [Recovering/Resolving]
  - Malaise [Unknown]
  - Pain [Unknown]
  - Abdominal discomfort [Unknown]
  - Diarrhoea [Unknown]
  - Dehydration [Unknown]
  - Occult blood positive [Unknown]

NARRATIVE: CASE EVENT DATE: 20150101
